FAERS Safety Report 7150186-3 (Version None)
Quarter: 2010Q4

REPORT INFORMATION
  Report Type: 
  Country: None (occurrence: None)
  Receive Date: 20101126
  Receipt Date: 20101116
  Transmission Date: 20110411
  Serious: Yes (Hospitalization)
  Sender: FDA-Public Use
  Company Number: 100001743

PATIENT
  Age: 50 Year
  Sex: Female

DRUGS (10)
  1. SAVELLA [Suspect]
     Indication: FIBROMYALGIA
     Dosage: 12.5 MG (12.5 MG, 1 IN 1 D), ORAL, 25 MG (12.5 MG, 2 IN 1 D), ORAL, 50 MG (25 MG, 2 IN 1D), ORAL
     Route: 048
     Dates: start: 20101014, end: 20101015
  2. SAVELLA [Suspect]
     Indication: FIBROMYALGIA
     Dosage: 12.5 MG (12.5 MG, 1 IN 1 D), ORAL, 25 MG (12.5 MG, 2 IN 1 D), ORAL, 50 MG (25 MG, 2 IN 1D), ORAL
     Route: 048
     Dates: start: 20101016, end: 20101019
  3. SAVELLA [Suspect]
     Indication: FIBROMYALGIA
     Dosage: 12.5 MG (12.5 MG, 1 IN 1 D), ORAL, 25 MG (12.5 MG, 2 IN 1 D), ORAL, 50 MG (25 MG, 2 IN 1D), ORAL
     Route: 048
     Dates: start: 20101020, end: 20101027
  4. SAVELLA [Suspect]
     Indication: FIBROMYALGIA
     Dosage: 100 MG (50 MG, 2 IN 1 D), ORAL
     Route: 048
     Dates: start: 20101028, end: 20101029
  5. TRAZODONE HCL [Suspect]
     Indication: INSOMNIA
     Dosage: 200 MG (200 MG, 1 IN 1 D), ORAL, 600 TO 800 MG
     Route: 048
     Dates: end: 20101028
  6. TRAZODONE HCL [Suspect]
     Indication: INSOMNIA
     Dosage: 200 MG (200 MG, 1 IN 1 D), ORAL, 600 TO 800 MG
     Route: 048
     Dates: start: 20101029, end: 20101029
  7. FLEXERIL [Suspect]
     Indication: INSOMNIA
     Dosage: 10 MG (10 MG, 1 IN 1 D), ORAL, 60 TO 80 MG, ORAL
     Route: 048
     Dates: end: 20101028
  8. FLEXERIL [Suspect]
     Indication: INSOMNIA
     Dosage: 10 MG (10 MG, 1 IN 1 D), ORAL, 60 TO 80 MG, ORAL
     Route: 048
     Dates: start: 20101029, end: 20101029
  9. ALCOHOL (ETHANOL) [Suspect]
     Dosage: ORAL
     Route: 048
     Dates: start: 20101029
  10. AMBIEN [Concomitant]

REACTIONS (5)
  - DEPRESSION [None]
  - MOOD SWINGS [None]
  - MULTIPLE DRUG OVERDOSE INTENTIONAL [None]
  - NEAR DROWNING [None]
  - SUICIDE ATTEMPT [None]
